FAERS Safety Report 13072572 (Version 4)
Quarter: 2018Q4

REPORT INFORMATION
  Report Type: Spontaneous
  Country: US (occurrence: US)
  Receive Date: 20161229
  Receipt Date: 20181016
  Transmission Date: 20190204
  Serious: Yes (Other)
  Sender: FDA-Public Use
  Company Number: US-SA-2016SA154004

PATIENT
  Age: 51 Year
  Sex: Female
  Weight: 68.94 kg

DRUGS (4)
  1. PARAPLATIN [Concomitant]
     Active Substance: CARBOPLATIN
     Dosage: UNK UNK,QCY
     Route: 042
     Dates: start: 20131202, end: 20131202
  2. PARAPLATIN [Concomitant]
     Active Substance: CARBOPLATIN
     Dosage: UNK UNK,QCY
     Route: 042
     Dates: start: 20130819, end: 20130819
  3. DOCETAXEL. [Suspect]
     Active Substance: DOCETAXEL
     Indication: BREAST CANCER FEMALE
     Dosage: 136 MG,Q3W
     Route: 042
     Dates: start: 20130819, end: 20130819
  4. DOCETAXEL. [Suspect]
     Active Substance: DOCETAXEL
     Dosage: 136 MG,Q3W
     Route: 051
     Dates: start: 20131202, end: 20131202

REACTIONS (5)
  - Alopecia [Recovering/Resolving]
  - Pain [Unknown]
  - Impaired quality of life [Unknown]
  - Anxiety [Unknown]
  - Emotional distress [Unknown]

NARRATIVE: CASE EVENT DATE: 2014
